FAERS Safety Report 9828248 (Version 1)
Quarter: 2014Q1

REPORT INFORMATION
  Report Type: Report from Study
  Country: JP (occurrence: JP)
  Receive Date: 20140117
  Receipt Date: 20140117
  Transmission Date: 20141002
  Serious: Yes (Hospitalization, Disabling, Other)
  Sender: FDA-Public Use
  Company Number: JP-TAKEDA-2014TJP000577

PATIENT
  Age: 63 Year
  Sex: Male
  Weight: 63 kg

DRUGS (4)
  1. ALOGLIPTIN, PIOGLITAZONE [Suspect]
     Indication: TYPE 2 DIABETES MELLITUS
     Dosage: 1 DF, QD
     Route: 048
     Dates: start: 20120928, end: 20121210
  2. AMARYL [Concomitant]
     Indication: TYPE 2 DIABETES MELLITUS
     Dosage: 0.5 MG, 1 DAYS
     Route: 048
     Dates: end: 20121210
  3. METGLUCO [Concomitant]
     Indication: TYPE 2 DIABETES MELLITUS
     Dosage: 500 MG, 1 DAYS
     Route: 048
     Dates: end: 20121210
  4. OLMETEC [Concomitant]
     Dosage: 10 MG, 1 DAYS
     Route: 048
     Dates: end: 20121210

REACTIONS (1)
  - Cerebral infarction [Recovered/Resolved with Sequelae]
